FAERS Safety Report 4688080-X (Version None)
Quarter: 2005Q2

REPORT INFORMATION
  Report Type: 
  Country: None (occurrence: None)
  Receive Date: 20050610
  Receipt Date: 20050601
  Transmission Date: 20051028
  Serious: Yes (Other)
  Sender: FDA-Public Use
  Company Number: FR-ROCHE-406439

PATIENT
  Age: 35 Year
  Sex: Female

DRUGS (5)
  1. RIVOTRIL [Suspect]
     Indication: DRUG USE FOR UNKNOWN INDICATION
     Route: 048
  2. NEURONTIN [Suspect]
     Indication: DRUG USE FOR UNKNOWN INDICATION
     Route: 065
  3. XANAX [Suspect]
     Indication: DRUG USE FOR UNKNOWN INDICATION
     Route: 048
  4. DEROXAT [Suspect]
     Indication: DRUG USE FOR UNKNOWN INDICATION
     Dosage: DOSING REGIMEN REPORTED AS 0.5 DOSES A DAY.
     Route: 048
  5. DI ANTALVIC [Suspect]
     Indication: DRUG USE FOR UNKNOWN INDICATION
     Dosage: DOSING REGIMEN REPORTED AS 6  DOSES A DAY.
     Route: 048

REACTIONS (5)
  - ABORTION INDUCED [None]
  - DRUG EXPOSURE DURING PREGNANCY [None]
  - FACIAL DYSMORPHISM [None]
  - MULTIPLE CONGENITAL ABNORMALITIES [None]
  - OESOPHAGEAL ATRESIA [None]
